FAERS Safety Report 24361671 (Version 1)
Quarter: 2024Q3

REPORT INFORMATION
  Report Type: Report from Study
  Country: US (occurrence: US)
  Receive Date: 20240925
  Receipt Date: 20240925
  Transmission Date: 20241017
  Serious: Yes (Hospitalization)
  Sender: BAYER
  Company Number: US-BAYER-2024A135730

PATIENT
  Age: 71 Year
  Sex: Female
  Weight: 65.17 kg

DRUGS (27)
  1. ADEMPAS [Suspect]
     Active Substance: RIOCIGUAT
     Indication: Pulmonary arterial hypertension
     Dosage: UNK
     Dates: start: 20221216
  2. ADEMPAS [Suspect]
     Active Substance: RIOCIGUAT
     Indication: Pulmonary arterial hypertension
     Dosage: 2.5 MG, TID
     Route: 048
  3. XARELTO [Suspect]
     Active Substance: RIVAROXABAN
  4. COLACE [Concomitant]
     Active Substance: DOCUSATE SODIUM
  5. VITAMINS [Concomitant]
     Active Substance: VITAMINS
  6. JARDIANCE [Concomitant]
     Active Substance: EMPAGLIFLOZIN
  7. ANORO ELLIPTA [Concomitant]
     Active Substance: UMECLIDINIUM BROMIDE\VILANTEROL TRIFENATATE
  8. POTASSIUM CHLORIDE [Concomitant]
     Active Substance: POTASSIUM CHLORIDE
  9. METFORMIN HYDROCHLORIDE [Concomitant]
     Active Substance: METFORMIN HYDROCHLORIDE
  10. EZETIMIBE [Concomitant]
     Active Substance: EZETIMIBE
  11. VENLAFAXINE HCL [Concomitant]
     Active Substance: VENLAFAXINE HYDROCHLORIDE
  12. PANTOPRAZOLE SODIUM [Concomitant]
     Active Substance: PANTOPRAZOLE SODIUM
  13. OMEGA-3 ACIDS [Concomitant]
     Active Substance: OMEGA-3 FATTY ACIDS
  14. LASIX [Concomitant]
     Active Substance: FUROSEMIDE
  15. SUCRALFATE [Concomitant]
     Active Substance: SUCRALFATE
  16. ROSUVASTATIN CALCIUM [Concomitant]
     Active Substance: ROSUVASTATIN CALCIUM
  17. BIOTIN [Concomitant]
     Active Substance: BIOTIN
  18. MAGNESIUM [Concomitant]
     Active Substance: MAGNESIUM
  19. BEVESPI AEROSPHERE [Concomitant]
     Active Substance: FORMOTEROL FUMARATE\GLYCOPYRROLATE
  20. ASPIRIN [Concomitant]
     Active Substance: ASPIRIN
  21. VITAMIN D3 [Concomitant]
     Active Substance: CHOLECALCIFEROL
  22. SPIRONOLACTONE [Concomitant]
     Active Substance: SPIRONOLACTONE
  23. OXYGEN [Concomitant]
     Active Substance: OXYGEN
  24. FUROSEMIDE [Concomitant]
     Active Substance: FUROSEMIDE
  25. ESCITALOPRAM OXALATE [Concomitant]
     Active Substance: ESCITALOPRAM OXALATE
  26. FERROUS SULFATE [Concomitant]
     Active Substance: FERROUS SULFATE
  27. ONDANSETRON HYDROCHLORIDE [Concomitant]
     Active Substance: ONDANSETRON HYDROCHLORIDE

REACTIONS (2)
  - Blood iron abnormal [None]
  - Internal haemorrhage [None]

NARRATIVE: CASE EVENT DATE: 20240901
